FAERS Safety Report 14034903 (Version 1)
Quarter: 2017Q4

REPORT INFORMATION
  Report Type: Other
  Country: US (occurrence: US)
  Receive Date: 20171003
  Receipt Date: 20171003
  Transmission Date: 20180321
  Serious: Yes (Hospitalization)
  Sender: FDA-Public Use
  Company Number: US-LEADIANT BIOSCIENCES INC-2017STPI000714

PATIENT
  Age: 37 Year
  Sex: Female

DRUGS (5)
  1. PEPCID                             /00305201/ [Concomitant]
     Active Substance: ALUMINUM HYDROXIDE\MAGNESIUM CARBONATE
  2. PHENYTOIN. [Concomitant]
     Active Substance: PHENYTOIN
  3. MATULANE [Suspect]
     Active Substance: PROCARBAZINE HYDROCHLORIDE
     Indication: BRAIN NEOPLASM MALIGNANT
     Dosage: 50 MG, 2 CAPSULES DAILY ON DAYS 8 TO 28 OF CYCLE
     Route: 048
     Dates: start: 20170711
  4. LEVETIRACETAM. [Concomitant]
     Active Substance: LEVETIRACETAM
  5. VITAMIN D                          /00107901/ [Concomitant]
     Active Substance: ERGOCALCIFEROL

REACTIONS (1)
  - Brain operation [Recovered/Resolved]

NARRATIVE: CASE EVENT DATE: 20170901
